FAERS Safety Report 9229472 (Version 1)
Quarter: 2013Q2

REPORT INFORMATION
  Report Type: Spontaneous
  Country: US (occurrence: US)
  Receive Date: 20130412
  Receipt Date: 20130412
  Transmission Date: 20140414
  Serious: No
  Sender: FDA-Public Use
  Company Number: US-ASTELLAS-2013US001220

PATIENT
  Sex: Female
  Weight: 76 kg

DRUGS (4)
  1. PROGRAF [Suspect]
     Indication: LIVER TRANSPLANT
     Dosage: 4 MG, UID/QD
     Route: 048
     Dates: start: 20070805
  2. GABAPENTIN [Concomitant]
     Indication: ANALGESIC THERAPY
     Dosage: 1200 MG, BID
     Route: 048
  3. METOPROLOL [Concomitant]
     Indication: ANGINA PECTORIS
     Dosage: 100 MG, BID
     Route: 048
  4. OMEPRAZOLE [Concomitant]
     Indication: GASTROOESOPHAGEAL REFLUX DISEASE
     Dosage: 20 MG, BID
     Route: 048

REACTIONS (2)
  - Treatment noncompliance [Unknown]
  - Malaise [Unknown]
